FAERS Safety Report 9348633 (Version 2)
Quarter: 2013Q4

REPORT INFORMATION
  Report Type: Spontaneous
  Country: FR (occurrence: FR)
  Receive Date: 20130614
  Receipt Date: 20131008
  Transmission Date: 20140711
  Serious: Yes (Other)
  Sender: FDA-Public Use
  Company Number: FR-TEVA-412173ISR

PATIENT
  Sex: Female
  Weight: 55 kg

DRUGS (11)
  1. FUROSEMIDE TEVA 40 MG [Suspect]
     Indication: CARDIAC FAILURE
     Route: 048
  2. ONBREZ [Concomitant]
     Indication: RESPIRATORY FAILURE
     Dosage: INHALATION
  3. MIFLONIL [Concomitant]
     Indication: RESPIRATORY FAILURE
     Dosage: INHALATION
  4. CORDARONE [Concomitant]
     Indication: CARDIAC FAILURE
     Route: 048
  5. LASILIX [Concomitant]
  6. DIFFU K [Concomitant]
     Dosage: 1200 MILLIGRAM DAILY;
     Route: 048
  7. SINGULAIR [Concomitant]
     Indication: RESPIRATORY FAILURE
     Dosage: 10 MILLIGRAM DAILY;
     Route: 048
  8. PREVISCAN [Concomitant]
     Indication: ATRIAL FIBRILLATION
  9. VENTOLINE [Concomitant]
  10. ATROVENT [Concomitant]
  11. CARDENSIEL [Concomitant]
     Indication: CARDIAC FAILURE
     Dosage: 1.25 MILLIGRAM DAILY;
     Route: 048

REACTIONS (1)
  - Respiratory failure [Unknown]
